FAERS Safety Report 7880613-5 (Version None)
Quarter: 2011Q4

REPORT INFORMATION
  Report Type: 
  Country: None (occurrence: None)
  Receive Date: 20111101
  Receipt Date: 20111027
  Transmission Date: 20120403
  Serious: Yes (Other)
  Sender: FDA-Public Use
  Company Number: US-ROCHE-791964

PATIENT
  Sex: Female
  Weight: 122.58 kg

DRUGS (3)
  1. ACCUTANE [Suspect]
     Indication: ACNE
     Route: 065
     Dates: start: 20060627, end: 20061015
  2. AMNESTEEM [Suspect]
     Indication: ACNE
     Route: 065
  3. ACCUTANE [Suspect]
     Indication: SEBACEOUS HYPERPLASIA

REACTIONS (4)
  - INFLAMMATORY BOWEL DISEASE [None]
  - COLITIS ULCERATIVE [None]
  - EMOTIONAL DISTRESS [None]
  - MENTAL DISORDER [None]
